FAERS Safety Report 12220125 (Version 1)
Quarter: 2016Q1

REPORT INFORMATION
  Report Type: Spontaneous
  Country: US (occurrence: US)
  Receive Date: 20160330
  Receipt Date: 20160330
  Transmission Date: 20160526
  Serious: No
  Sender: FDA-Public Use
  Company Number: US-LUPIN PHARMACEUTICALS INC.-2016-00280

PATIENT
  Sex: Female
  Weight: 68.04 kg

DRUGS (4)
  1. GABAPENTIN. [Suspect]
     Active Substance: GABAPENTIN
     Indication: POST HERPETIC NEURALGIA
     Route: 048
     Dates: end: 201512
  2. GABAPENTIN. [Suspect]
     Active Substance: GABAPENTIN
     Indication: INTERVERTEBRAL DISC PROTRUSION
     Dosage: 500 MG
     Route: 048
     Dates: start: 200908
  3. DULOXETINE. [Suspect]
     Active Substance: DULOXETINE
     Indication: INTERVERTEBRAL DISC PROTRUSION
     Route: 048
     Dates: start: 200911, end: 201512
  4. DULOXETINE. [Suspect]
     Active Substance: DULOXETINE
     Indication: POST HERPETIC NEURALGIA

REACTIONS (2)
  - Product use issue [Unknown]
  - Rash erythematous [Unknown]
